FAERS Safety Report 7652694-5 (Version None)
Quarter: 2011Q3

REPORT INFORMATION
  Report Type: 
  Country: None (occurrence: None)
  Receive Date: 20110802
  Receipt Date: 20110802
  Transmission Date: 20111222
  Serious: Yes (Hospitalization)
  Sender: FDA-Public Use
  Company Number: None

PATIENT
  Age: 49 Year
  Sex: Male
  Weight: 78.9 kg

DRUGS (2)
  1. LORAZEPAM [Suspect]
     Indication: AGGRESSION
     Dosage: 2 MG ONCE IV
     Route: 042
     Dates: start: 20110713, end: 20110713
  2. LORAZEPAM [Suspect]
     Indication: DIALYSIS
     Dosage: 2 MG ONCE IV
     Route: 042
     Dates: start: 20110713, end: 20110713

REACTIONS (1)
  - SEDATION [None]
